FAERS Safety Report 9846832 (Version 2)
Quarter: 2014Q1

REPORT INFORMATION
  Report Type: Report from Study
  Country: US (occurrence: US)
  Receive Date: 20140127
  Receipt Date: 20140203
  Transmission Date: 20141002
  Serious: Yes (Death)
  Sender: FDA-Public Use
  Company Number: US-CELGENEUS-163-21880-14013516

PATIENT
  Age: 63 Year
  Sex: Female
  Weight: 50.85 kg

DRUGS (32)
  1. REVLIMID [Suspect]
     Indication: PLASMA CELL MYELOMA
     Route: 048
     Dates: start: 20130211, end: 20130619
  2. REVLIMID [Suspect]
     Route: 048
     Dates: start: 20130711
  3. DEXAMETHASONE [Suspect]
     Indication: PLASMA CELL MYELOMA
     Dosage: 20 MILLIGRAM
     Route: 065
     Dates: start: 20130210, end: 20130619
  4. DEXAMETHASONE [Suspect]
     Route: 041
     Dates: start: 20131210, end: 20131211
  5. DEXAMETHASONE [Suspect]
     Dosage: 20 MILLIGRAM
     Route: 041
     Dates: start: 20131210, end: 20131210
  6. VELCADE [Suspect]
     Indication: PLASMA CELL MYELOMA
     Route: 065
     Dates: start: 20130211, end: 20130619
  7. GADOBUTROL [Concomitant]
     Indication: PRODUCT USED FOR UNKNOWN INDICATION
     Dosage: 5 MICROMOLE
     Route: 041
     Dates: start: 20131210, end: 20131210
  8. ZOMETA [Concomitant]
     Indication: PROPHYLAXIS
     Route: 065
  9. ZOMETA [Concomitant]
     Indication: HYPERCALCAEMIA
  10. DELZICOL [Concomitant]
     Indication: PRODUCT USED FOR UNKNOWN INDICATION
     Dosage: 1200 MILLIGRAM
     Route: 048
  11. CELEXA [Concomitant]
     Indication: PRODUCT USED FOR UNKNOWN INDICATION
     Dosage: 20 MILLIGRAM
     Route: 048
  12. CELEXA [Concomitant]
     Dosage: 10 MILLIGRAM
     Route: 048
  13. PROTONIX [Concomitant]
     Indication: PRODUCT USED FOR UNKNOWN INDICATION
     Dosage: 40 MILLIGRAM
     Route: 048
  14. FENTANYL [Concomitant]
     Indication: PRODUCT USED FOR UNKNOWN INDICATION
     Route: 065
     Dates: start: 20131210, end: 20131216
  15. FENTANYL [Concomitant]
     Dosage: 75 MICROGRAM
     Route: 065
     Dates: start: 20131210, end: 20131216
  16. SPIRIVA [Concomitant]
     Indication: PRODUCT USED FOR UNKNOWN INDICATION
     Dosage: 1 PUFF
     Route: 065
  17. OXYCODONE HCL [Concomitant]
     Indication: PRODUCT USED FOR UNKNOWN INDICATION
     Dosage: 60 MILLIGRAM
     Route: 048
  18. MAG-OXIDE [Concomitant]
     Indication: PRODUCT USED FOR UNKNOWN INDICATION
     Route: 065
  19. DOXYCYCLINE HYCLATE [Concomitant]
     Indication: PRODUCT USED FOR UNKNOWN INDICATION
     Dosage: 200 MILLIGRAM
     Route: 048
  20. VITAMIN D3 [Concomitant]
     Indication: PRODUCT USED FOR UNKNOWN INDICATION
     Route: 065
  21. LORAZEPAM [Concomitant]
     Indication: ANXIETY
     Dosage: .5 MILLIGRAM
     Route: 041
     Dates: start: 20131012, end: 20131210
  22. LORAZEPAM [Concomitant]
     Indication: AGITATION
     Route: 041
     Dates: start: 20131210, end: 20131211
  23. LORAZEPAM [Concomitant]
     Route: 041
     Dates: start: 20131210, end: 20131211
  24. POTASSIUM CHLORIDE/SODIUM CHLORIDE [Concomitant]
     Indication: PRODUCT USED FOR UNKNOWN INDICATION
     Route: 041
     Dates: start: 20131210, end: 20131210
  25. ALBUTEROL SULFATE [Concomitant]
     Indication: CHRONIC OBSTRUCTIVE PULMONARY DISEASE
     Dosage: 10 MILLIGRAM
     Route: 065
     Dates: start: 20131210, end: 20131211
  26. CEFTRIAXONE SODIUM [Concomitant]
     Indication: PRODUCT USED FOR UNKNOWN INDICATION
     Dosage: 1 GRAM
     Route: 041
     Dates: start: 20131210, end: 20131210
  27. MAGNESIUM SULFATE/DEXTROSE [Concomitant]
     Indication: PRODUCT USED FOR UNKNOWN INDICATION
     Dosage: 100 MILLILITER
     Route: 041
     Dates: start: 20131210, end: 20131210
  28. LIDOCAINE/SODIUM BICARBONATE [Concomitant]
     Indication: PRODUCT USED FOR UNKNOWN INDICATION
     Dosage: 10 MILLILITER
     Route: 041
     Dates: start: 20131211, end: 20131211
  29. METOPROLOL TARTRATE [Concomitant]
     Indication: PRODUCT USED FOR UNKNOWN INDICATION
     Route: 041
     Dates: start: 20131216, end: 20131217
  30. CALCIUM PLUS VITAMIN D3 [Concomitant]
     Indication: PRODUCT USED FOR UNKNOWN INDICATION
     Route: 048
  31. MELPHALAN [Concomitant]
     Indication: PLASMA CELL MYELOMA
     Dosage: 200 MILLIGRAM/SQ. METER
     Route: 041
     Dates: start: 20121210, end: 20121210
  32. SYSTEMIC THERAPY [Concomitant]
     Indication: PLASMA CELL MYELOMA
     Route: 065
     Dates: start: 20120619, end: 20121002

REACTIONS (1)
  - Plasmacytoma [Fatal]
